FAERS Safety Report 20050711 (Version 1)
Quarter: 2021Q4

REPORT INFORMATION
  Report Type: Spontaneous
  Country: US (occurrence: US)
  Receive Date: 20211109
  Receipt Date: 20211109
  Transmission Date: 20220304
  Serious: No
  Sender: FDA-Public Use
  Company Number: US-AMGEN-USASP2021170801

PATIENT
  Sex: Female

DRUGS (4)
  1. ARANESP [Suspect]
     Active Substance: DARBEPOETIN ALFA
     Indication: Dialysis
     Dosage: UNK
     Route: 065
  2. ARANESP [Suspect]
     Active Substance: DARBEPOETIN ALFA
     Indication: Chronic kidney disease
  3. EPOGEN [Suspect]
     Active Substance: ERYTHROPOIETIN
     Indication: Dialysis
     Dosage: 2000 UNIT
     Route: 065
     Dates: start: 201909
  4. EPOGEN [Suspect]
     Active Substance: ERYTHROPOIETIN
     Indication: Chronic kidney disease
     Dosage: 5000 UNIT
     Route: 042
     Dates: start: 202001

REACTIONS (1)
  - Drug ineffective [Unknown]
